FAERS Safety Report 9201217 (Version 8)
Quarter: 2015Q4

REPORT INFORMATION
  Report Type: Report from Study
  Country: CA (occurrence: CA)
  Receive Date: 20130401
  Receipt Date: 20151019
  Transmission Date: 20160305
  Serious: Yes (Hospitalization)
  Sender: FDA-Public Use
  Company Number: PHHY2013CA028458

PATIENT
  Age: 41 Year
  Sex: Female

DRUGS (6)
  1. ADVEL [Concomitant]
     Indication: HEADACHE
     Dosage: UNK, PRN
     Route: 065
  2. CHOLESTYRAMINE. [Concomitant]
     Active Substance: CHOLESTYRAMINE
     Indication: DIARRHOEA
     Dosage: UNK, QD
     Route: 065
  3. SANDOSTATIN [Suspect]
     Active Substance: OCTREOTIDE ACETATE
     Indication: CARCINOID TUMOUR OF THE SMALL BOWEL
     Dosage: TEST DOSE, ONCE/SINGLE
     Route: 058
     Dates: start: 20100719, end: 20100719
  4. SANDOSTATIN LAR DEPOT [Suspect]
     Active Substance: OCTREOTIDE ACETATE
     Indication: CARCINOID TUMOUR OF THE SMALL BOWEL
     Dosage: 30 MG, QMO
     Route: 030
     Dates: start: 20100913
  5. GEN-TRAZODONE [Concomitant]
     Indication: PRODUCT USED FOR UNKNOWN INDICATION
     Route: 065
  6. GRAVOL [Concomitant]
     Active Substance: DIMENHYDRINATE
     Indication: NAUSEA
     Dosage: UNK, PRN
     Route: 065

REACTIONS (10)
  - Injection site hypoaesthesia [Unknown]
  - Alopecia [Unknown]
  - Blood pressure increased [Unknown]
  - Nasopharyngitis [Unknown]
  - Blood pressure systolic increased [Unknown]
  - Hepatic lesion [Unknown]
  - Body temperature decreased [Unknown]
  - Injection site haemorrhage [Unknown]
  - Eczema [Unknown]
  - Anxiety [Unknown]

NARRATIVE: CASE EVENT DATE: 20130317
